FAERS Safety Report 6184672-X (Version None)
Quarter: 2009Q2

REPORT INFORMATION
  Report Type: 
  Country: None (occurrence: None)
  Receive Date: 20090508
  Receipt Date: 20090501
  Transmission Date: 20091009
  Serious: Yes (Death)
  Sender: FDA-Public Use
  Company Number: GB-TEVA-193553ISR

PATIENT
  Age: 17 Year

DRUGS (5)
  1. FLUDARABINE PHOSPHATE [Suspect]
     Indication: STEM CELL TRANSPLANT
  2. ALEMTUZUMAB [Suspect]
     Indication: STEM CELL TRANSPLANT
  3. CYCLOSPORINE [Suspect]
     Indication: PROPHYLAXIS AGAINST GRAFT VERSUS HOST DISEASE
  4. ITRACONAZOLE [Suspect]
     Indication: ANTIFUNGAL PROPHYLAXIS
  5. MELPHALAN [Suspect]
     Indication: STEM CELL TRANSPLANT

REACTIONS (3)
  - ASPERGILLOSIS [None]
  - DRUG INEFFECTIVE [None]
  - DRUG RESISTANCE [None]
